FAERS Safety Report 6141892-8 (Version None)
Quarter: 2009Q2

REPORT INFORMATION
  Report Type: 
  Country: None (occurrence: None)
  Receive Date: 20090402
  Receipt Date: 20090326
  Transmission Date: 20091009
  Serious: Yes (Hospitalization)
  Sender: FDA-Public Use
  Company Number: PHHY2009DE11592

PATIENT
  Sex: Female

DRUGS (11)
  1. ZOMETA [Suspect]
     Indication: METASTASES TO BONE
     Dosage: 4 MG EVERY 4 WEEKS
     Dates: start: 20050401, end: 20071001
  2. ZOMETA [Interacting]
     Indication: BREAST CANCER METASTATIC
  3. PAMIDRONATE DISODIUM [Interacting]
     Indication: METASTASES TO BONE
  4. PAMIDRONATE DISODIUM [Interacting]
     Indication: BREAST CANCER METASTATIC
  5. AVASTIN [Interacting]
     Indication: METASTASES TO BONE
     Dosage: 10 MG/KG EVERY 2 WEEKS
     Route: 042
     Dates: start: 20071119, end: 20080616
  6. AVASTIN [Interacting]
     Indication: BREAST CANCER METASTATIC
  7. PACLITAXEL [Concomitant]
     Indication: METASTASES TO PLEURA
     Dosage: 90 MG/M2
     Route: 042
     Dates: start: 20071119, end: 20080325
  8. MORPHINE [Concomitant]
  9. RAMIPRIL [Concomitant]
  10. HYDROCHLOROTHIAZIDE [Concomitant]
  11. LERCANIDIPINE [Concomitant]

REACTIONS (5)
  - DENTAL OPERATION [None]
  - DRUG INTERACTION [None]
  - EXOSTOSIS [None]
  - OSTEONECROSIS [None]
  - SWELLING [None]
